FAERS Safety Report 6450747-0 (Version None)
Quarter: 2009Q4

REPORT INFORMATION
  Report Type: 
  Country: None (occurrence: None)
  Receive Date: 20091120
  Receipt Date: 20091120
  Transmission Date: 20100525
  Serious: Yes (Hospitalization)
  Sender: FDA-Public Use
  Company Number: None

PATIENT
  Age: 62 Year
  Sex: Male
  Weight: 87.54 kg

DRUGS (1)
  1. FENOFIBRATE [Suspect]
     Indication: HYPERLIPIDAEMIA
     Dosage: 145 MG EVERY DAY PO
     Route: 048
     Dates: start: 20080811, end: 20081215

REACTIONS (2)
  - ARTHRALGIA [None]
  - MUSCLE SPASMS [None]
